FAERS Safety Report 22992378 (Version 6)
Quarter: 2025Q1

REPORT INFORMATION
  Report Type: Report from Study
  Country: US (occurrence: US)
  Receive Date: 20230927
  Receipt Date: 20250218
  Transmission Date: 20250409
  Serious: Yes (Disabling)
  Sender: NOVARTIS
  Company Number: US-002147023-NVSC2023US204468

PATIENT
  Sex: Male

DRUGS (1)
  1. KESIMPTA [Suspect]
     Active Substance: OFATUMUMAB
     Indication: Multiple sclerosis
     Route: 058
     Dates: start: 20230902

REACTIONS (6)
  - Gait disturbance [Unknown]
  - Feeling abnormal [Unknown]
  - Fall [Unknown]
  - Scar [Unknown]
  - Memory impairment [Unknown]
  - Dysstasia [Unknown]
